FAERS Safety Report 11728551 (Version 1)
Quarter: 2015Q4

REPORT INFORMATION
  Report Type: Spontaneous
  Country: US (occurrence: US)
  Receive Date: 20151110
  Receipt Date: 20151110
  Transmission Date: 20160304
  Serious: No
  Sender: FDA-Public Use
  Company Number: US-ELI_LILLY_AND_COMPANY-US201112001060

PATIENT
  Sex: Female

DRUGS (1)
  1. FORTEO [Suspect]
     Active Substance: TERIPARATIDE
     Indication: OSTEOPOROSIS
     Dosage: 2 UG, QD

REACTIONS (11)
  - Feeding disorder [Unknown]
  - Weight decreased [Unknown]
  - Gastrooesophageal reflux disease [Unknown]
  - Hernia [Unknown]
  - Incorrect dose administered [Unknown]
  - Palpitations [Unknown]
  - Fear of disease [Unknown]
  - Malaise [Unknown]
  - Intentional product misuse [Unknown]
  - Dyspepsia [Unknown]
  - Nausea [Unknown]
